FAERS Safety Report 14025706 (Version 1)
Quarter: 2017Q3

REPORT INFORMATION
  Report Type: Report from Study
  Country: DE (occurrence: DE)
  Receive Date: 20170929
  Receipt Date: 20170929
  Transmission Date: 20171128
  Serious: Yes (Hospitalization)
  Sender: FDA-Public Use
  Company Number: DE-BIOGEN-2017BI00464899

PATIENT
  Age: 30 Year
  Sex: Male

DRUGS (1)
  1. PLEGRIDY [Suspect]
     Active Substance: PEGINTERFERON BETA-1A
     Indication: MULTIPLE SCLEROSIS
     Route: 058
     Dates: start: 20170215

REACTIONS (3)
  - Appendicitis perforated [Recovered/Resolved]
  - Appendiceal abscess [Recovered/Resolved]
  - Incision site abscess [Recovered/Resolved]

NARRATIVE: CASE EVENT DATE: 201708
